FAERS Safety Report 4347811-9 (Version None)
Quarter: 2004Q1

REPORT INFORMATION
  Report Type: 
  Country: None (occurrence: None)
  Receive Date: 20040325
  Receipt Date: 20040123
  Transmission Date: 20041129
  Serious: No
  Sender: FDA-Public Use
  Company Number: USA040157101

PATIENT
  Age: 51 Year
  Sex: Female
  Weight: 51 kg

DRUGS (7)
  1. FORTEO [Suspect]
     Dates: start: 20030809
  2. ZYPREXA [Suspect]
     Dates: start: 20020101
  3. ATIVAN [Concomitant]
  4. FOSAMAX [Concomitant]
  5. CALCIUM [Concomitant]
  6. REMERON [Concomitant]
  7. PREMARIN [Concomitant]

REACTIONS (4)
  - DYSPEPSIA [None]
  - INFECTION [None]
  - INJECTION SITE RASH [None]
  - WEIGHT INCREASED [None]
